FAERS Safety Report 7455813-9 (Version None)
Quarter: 2011Q2

REPORT INFORMATION
  Report Type: 
  Country: None (occurrence: None)
  Receive Date: 20110503
  Receipt Date: 20110426
  Transmission Date: 20111010
  Serious: Yes (Other)
  Sender: FDA-Public Use
  Company Number: PHHY2011US32017

PATIENT
  Age: 27 Year
  Sex: Female
  Weight: 113 kg

DRUGS (6)
  1. NEURONTIN [Concomitant]
     Indication: PAIN
     Dosage: UNK
  2. GILENYA [Suspect]
     Dosage: UNK
     Route: 048
     Dates: start: 20110131
  3. FLUOXETINE [Concomitant]
     Indication: DEPRESSED MOOD
     Dosage: 40 MG, QD
     Route: 048
     Dates: start: 20021220
  4. METFORMIN HYDROCHLORIDE [Concomitant]
  5. IBUPROFEN [Concomitant]
     Dosage: UNK
  6. PREDNISONE [Concomitant]

REACTIONS (2)
  - ELECTROCARDIOGRAM ABNORMAL [None]
  - DRUG INEFFECTIVE [None]
